FAERS Safety Report 10151123 (Version 2)
Quarter: 2014Q2

REPORT INFORMATION
  Report Type: Spontaneous
  Country: ES (occurrence: ES)
  Receive Date: 20140502
  Receipt Date: 20140516
  Transmission Date: 20141212
  Serious: Yes (Other)
  Sender: FDA-Public Use
  Company Number: ES-ABBVIE-14P-144-1228539-00

PATIENT
  Age: 63 Year
  Sex: Female
  Weight: 80 kg

DRUGS (5)
  1. HUMIRA [Suspect]
     Indication: CROHN^S DISEASE
     Route: 058
     Dates: start: 2008
  2. HUMIRA [Suspect]
     Indication: ANAL FISTULA
  3. PENTASA [Concomitant]
     Indication: CROHN^S DISEASE
     Route: 048
  4. PANTOPRAZOL [Concomitant]
     Indication: GASTRIC DISORDER
     Route: 048
  5. PANTOPRAZOL [Concomitant]
     Indication: PROPHYLAXIS

REACTIONS (1)
  - Osteonecrosis of jaw [Recovering/Resolving]
